FAERS Safety Report 16890206 (Version 1)
Quarter: 2019Q4

REPORT INFORMATION
  Report Type: Spontaneous
  Country: US (occurrence: US)
  Receive Date: 20191004
  Receipt Date: 20191004
  Transmission Date: 20200122
  Serious: Yes (Disabling, Other)
  Sender: FDA-Public Use
  Company Number: None

PATIENT
  Age: 36 Year
  Sex: Female
  Weight: 69.75 kg

DRUGS (2)
  1. JUNEL FE 1/20 [Concomitant]
     Active Substance: ETHINYL ESTRADIOL\NORETHINDRONE ACETATE
  2. VRAYLAR [Suspect]
     Active Substance: CARIPRAZINE
     Indication: MOOD SWINGS
     Dates: start: 20190909, end: 20190925

REACTIONS (10)
  - Anxiety [None]
  - Emotional poverty [None]
  - Insomnia [None]
  - Sensory loss [None]
  - Panic attack [None]
  - Feeling abnormal [None]
  - Tremor [None]
  - Confusional state [None]
  - Decreased appetite [None]
  - Depersonalisation/derealisation disorder [None]

NARRATIVE: CASE EVENT DATE: 20190925
